FAERS Safety Report 6595737-2 (Version None)
Quarter: 2010Q1

REPORT INFORMATION
  Report Type: 
  Country: None (occurrence: None)
  Receive Date: 20100219
  Receipt Date: 20100219
  Transmission Date: 20100710
  Serious: Yes (Life-Threatening, Other)
  Sender: FDA-Public Use
  Company Number: None

PATIENT
  Age: 62 Year
  Sex: Female

DRUGS (1)
  1. AMOUR THYROID FOREST [Suspect]
     Indication: HYPOTHYROIDISM
     Dosage: 150 MG DAILY SINCE 1983 TO NOW

REACTIONS (4)
  - BLOOD THYROID STIMULATING HORMONE INCREASED [None]
  - EXTRASYSTOLES [None]
  - PALPITATIONS [None]
  - PRODUCT SUBSTITUTION ISSUE [None]
